FAERS Safety Report 26086736 (Version 1)
Quarter: 2025Q4

REPORT INFORMATION
  Report Type: Spontaneous
  Country: JP (occurrence: JP)
  Receive Date: 20251125
  Receipt Date: 20251125
  Transmission Date: 20260117
  Serious: Yes (Other)
  Sender: AMGEN
  Company Number: JP-AMGEN-JPNSP2025229078

PATIENT

DRUGS (1)
  1. TRASTUZUMAB [Suspect]
     Active Substance: TRASTUZUMAB
     Indication: Gastric cancer stage IV
     Dosage: UNK
     Route: 065

REACTIONS (2)
  - Gastric cancer stage IV [Unknown]
  - Adverse event [Unknown]
